FAERS Safety Report 9010119 (Version 4)
Quarter: 2013Q3

REPORT INFORMATION
  Report Type: Spontaneous
  Country: US (occurrence: US)
  Receive Date: 20130110
  Receipt Date: 20130923
  Transmission Date: 20140515
  Serious: Yes (Hospitalization, Other)
  Sender: FDA-Public Use
  Company Number: US-009507513-1301USA002316

PATIENT
  Sex: Female
  Weight: 108.84 kg

DRUGS (4)
  1. FOSAMAX [Suspect]
     Indication: BONE DISORDER
     Dosage: 70 MG, QW
     Route: 048
     Dates: start: 200305
  2. FOSAMAX [Suspect]
     Indication: OSTEOPOROSIS
  3. ALENDRONATE SODIUM [Suspect]
     Dosage: 70 MG, UNK
     Route: 048
  4. ALBUTEROL [Concomitant]
     Indication: ASTHMA
     Dosage: 4 MG TAB BID AND NEBULIZER Q 8 HOURS

REACTIONS (43)
  - Intramedullary rod insertion [Unknown]
  - Intramedullary rod insertion [Unknown]
  - Knee arthroplasty [Unknown]
  - Knee arthroplasty [Unknown]
  - Ulcer haemorrhage [Unknown]
  - Hearing impaired [Unknown]
  - Non-cardiac chest pain [Unknown]
  - Femur fracture [Unknown]
  - Femur fracture [Recovered/Resolved]
  - Exostosis [Unknown]
  - Impaired healing [Unknown]
  - Osteopenia [Unknown]
  - General physical health deterioration [Unknown]
  - Hypertension [Unknown]
  - Glaucoma [Unknown]
  - Debridement [Unknown]
  - Shoulder operation [Unknown]
  - Osteoarthritis [Unknown]
  - Benign bone neoplasm [Unknown]
  - Spondylitis [Unknown]
  - Bursitis [Unknown]
  - Debridement [Unknown]
  - Fascia release [Unknown]
  - Tendon operation [Unknown]
  - Arthroscopy [Unknown]
  - Rotator cuff syndrome [Unknown]
  - Osteoarthritis [Unknown]
  - Rotator cuff syndrome [Unknown]
  - Foot operation [Unknown]
  - Dyslipidaemia [Unknown]
  - Hypothyroidism [Unknown]
  - Cataract operation [Unknown]
  - Retinal detachment [Unknown]
  - Retinal operation [Unknown]
  - Blepharoplasty [Unknown]
  - Nephrolithiasis [Unknown]
  - Sinus bradycardia [Unknown]
  - Blood magnesium decreased [Unknown]
  - Deep vein thrombosis [Unknown]
  - Carpal tunnel decompression [Unknown]
  - Sinus bradycardia [Unknown]
  - Gastrooesophageal reflux disease [Unknown]
  - Arthralgia [Unknown]
